FAERS Safety Report 9370048 (Version 1)
Quarter: 2013Q2

REPORT INFORMATION
  Report Type: Spontaneous
  Country: US (occurrence: US)
  Receive Date: 20130626
  Receipt Date: 20130626
  Transmission Date: 20140414
  Serious: Yes (Other)
  Sender: FDA-Public Use
  Company Number: US-PFIZER INC-2013188156

PATIENT
  Sex: 0

DRUGS (3)
  1. PREMARIN [Suspect]
     Dosage: UNK, (0.45)
  2. ZOLOFT [Suspect]
     Dosage: UNK
  3. LEXAPRO [Suspect]
     Dosage: UNK

REACTIONS (7)
  - Depression [Unknown]
  - Nausea [Unknown]
  - Dry mouth [Unknown]
  - Fatigue [Unknown]
  - Night sweats [Unknown]
  - Urine output decreased [Unknown]
  - Decreased appetite [Unknown]
